FAERS Safety Report 15969459 (Version 2)
Quarter: 2019Q4

REPORT INFORMATION
  Report Type: Report from Study
  Country: US (occurrence: US)
  Receive Date: 20190215
  Receipt Date: 20191004
  Transmission Date: 20200122
  Serious: Yes (Hospitalization)
  Sender: FDA-Public Use
  Company Number: US-ACTELION-A-NJ2016-144839

PATIENT
  Sex: Female
  Weight: 84.35 kg

DRUGS (3)
  1. OPSUMIT [Suspect]
     Active Substance: MACITENTAN
     Indication: PULMONARY ARTERIAL HYPERTENSION
     Dosage: 10 MG, QD
     Route: 048
     Dates: start: 20160512, end: 201701
  2. REMODULIN [Concomitant]
     Active Substance: TREPROSTINIL
  3. OPSUMIT [Suspect]
     Active Substance: MACITENTAN
     Dosage: 10 MG, QD
     Route: 048

REACTIONS (15)
  - Oedema peripheral [Unknown]
  - Vomiting [Unknown]
  - Right atrial enlargement [Unknown]
  - Condition aggravated [Unknown]
  - Pneumonia [Unknown]
  - Nausea [Unknown]
  - Infusion site abscess [Unknown]
  - Dizziness [Unknown]
  - Systolic dysfunction [Unknown]
  - Dyspnoea [Unknown]
  - Headache [Unknown]
  - Hypotension [Unknown]
  - Cardiac disorder [Unknown]
  - Cough [Unknown]
  - Diarrhoea [Unknown]

NARRATIVE: CASE EVENT DATE: 2016
